FAERS Safety Report 7120302-8 (Version None)
Quarter: 2010Q4

REPORT INFORMATION
  Report Type: 
  Country: None (occurrence: None)
  Receive Date: 20101123
  Receipt Date: 20101122
  Transmission Date: 20110411
  Serious: Yes (Hospitalization)
  Sender: FDA-Public Use
  Company Number: DE-BRISTOL-MYERS SQUIBB COMPANY-15389976

PATIENT
  Age: 43 Year
  Sex: Female
  Weight: 45 kg

DRUGS (5)
  1. CETUXIMAB [Suspect]
     Indication: HEAD AND NECK CANCER
     Dosage: CISPLATIN INTRAVENOUS INFUSION 362.5 MG,INTERRUPTED UNK DATE,RESTARTED ON 08NOV10
     Route: 042
     Dates: start: 20101011
  2. CISPLATIN [Suspect]
     Indication: HEAD AND NECK CANCER
     Dosage: INTERRUPTED ON UNK DATE + RESTARTED ON 08-OCT-10,195 MG
     Route: 042
     Dates: start: 20101011
  3. DOCETAXEL [Suspect]
     Indication: HEAD AND NECK CANCER
     Dosage: DOCETAXEL INTRAVENOUS INFUSION INTERRUPTED UNK DATE,RESTARTED ON 08NOV10
     Route: 042
     Dates: start: 20101011
  4. FLUOROURACIL [Suspect]
     Indication: HEAD AND NECK CANCER
     Dosage: FLUOROURACIL INTRAVENOUS INFUSION INTERRUPTED ON UNK DATE + RESTARTED ON 08-OCT-10,2900 MG
     Route: 042
     Dates: start: 20101011
  5. DURAGESIC-100 [Concomitant]
     Indication: PAIN
     Dosage: 1 DF = 25 UNIT NOT MENTIONED
     Dates: start: 20100930

REACTIONS (5)
  - ANAEMIA [None]
  - FATIGUE [None]
  - NAUSEA [None]
  - NEUTROPENIA [None]
  - VOMITING [None]
